FAERS Safety Report 9640440 (Version 1)
Quarter: 2013Q4

REPORT INFORMATION
  Report Type: Spontaneous
  Country: US (occurrence: None)
  Receive Date: 20131022
  Receipt Date: 20131022
  Transmission Date: 20140711
  Serious: No
  Sender: FDA-Public Use
  Company Number: None

PATIENT
  Age: 55 Year
  Sex: Female
  Weight: 52.16 kg

DRUGS (11)
  1. BOTOX ALLERGAN BOTULINUM TOXIN TYPE-A (NEUROTOXIN) ALLERGAN [Suspect]
     Indication: SKIN WRINKLING
     Dosage: ONCE/ 4 MONTHS INJECTION
     Dates: start: 2009
  2. PREMPRO [Concomitant]
  3. OMEPRAZOLE [Concomitant]
  4. BUSPIRONE [Concomitant]
  5. PROPRANALOL [Concomitant]
  6. PRAZOSIN [Concomitant]
  7. CLONAZEPAM [Concomitant]
  8. BENEDRYL [Concomitant]
  9. VIT D. [Concomitant]
  10. MAGNESIUM [Concomitant]
  11. DHEA [Concomitant]

REACTIONS (1)
  - Injection site induration [None]
